FAERS Safety Report 13735056 (Version 1)
Quarter: 2017Q3

REPORT INFORMATION
  Report Type: Spontaneous
  Country: US (occurrence: US)
  Receive Date: 20170710
  Receipt Date: 20170710
  Transmission Date: 20171127
  Serious: No
  Sender: FDA-Public Use
  Company Number: US-THE MEDICINES COMPANY-US-MDCO-17-00065

PATIENT
  Sex: Female

DRUGS (1)
  1. IONSYS [Suspect]
     Active Substance: FENTANYL HYDROCHLORIDE
     Indication: PROCEDURAL PAIN
     Dosage: NOT REPORTED
     Dates: start: 20170209, end: 20170210

REACTIONS (5)
  - Drug ineffective [Recovered/Resolved]
  - Chemical burn [None]
  - Blister [None]
  - Application site burn [Recovered/Resolved]
  - Application site pain [Recovered/Resolved]

NARRATIVE: CASE EVENT DATE: 20170210
